FAERS Safety Report 20847722 (Version 1)
Quarter: 2022Q2

REPORT INFORMATION
  Report Type: Spontaneous
  Country: US (occurrence: US)
  Receive Date: 20220519
  Receipt Date: 20220519
  Transmission Date: 20220721
  Serious: No
  Sender: FDA-Public Use
  Company Number: US-BRISTOL-MYERS SQUIBB COMPANY-2022-025514

PATIENT
  Age: 91 Year
  Sex: Male
  Weight: 66.22 kg

DRUGS (1)
  1. POMALYST [Suspect]
     Active Substance: POMALIDOMIDE
     Indication: Plasma cell myeloma
     Dosage: FREQUENCY: 21D EVERY 28D
     Route: 048

REACTIONS (2)
  - Pruritus [Not Recovered/Not Resolved]
  - Intentional product use issue [Unknown]
